FAERS Safety Report 6914473-3 (Version None)
Quarter: 2010Q3

REPORT INFORMATION
  Report Type: 
  Country: None (occurrence: None)
  Receive Date: 20100809
  Receipt Date: 20100802
  Transmission Date: 20110219
  Serious: Yes (Hospitalization, Other)
  Sender: FDA-Public Use
  Company Number: US-PFIZER INC-2010080188

PATIENT
  Sex: Male

DRUGS (3)
  1. LIPITOR [Suspect]
     Dosage: UNK
  2. ADVAIR DISKUS 100/50 [Concomitant]
     Indication: LUNG DISORDER
     Dosage: UNK
     Route: 055
  3. SPIRIVA [Concomitant]
     Indication: LUNG DISORDER
     Dosage: UNK
     Route: 055

REACTIONS (3)
  - AORTIC ANEURYSM [None]
  - CHOLECYSTITIS INFECTIVE [None]
  - CHOLELITHIASIS [None]
